FAERS Safety Report 5884155-8 (Version None)
Quarter: 2008Q3

REPORT INFORMATION
  Report Type: 
  Country: None (occurrence: None)
  Receive Date: 20080915
  Receipt Date: 20080908
  Transmission Date: 20090109
  Serious: Yes (Other)
  Sender: FDA-Public Use
  Company Number: PHHY2008CA20966

PATIENT
  Sex: Female

DRUGS (2)
  1. DESFERAL [Suspect]
     Dosage: 4000 MG
     Route: 058
  2. PANTOPRAZOLE SODIUM [Concomitant]
     Indication: GASTROOESOPHAGEAL REFLUX DISEASE
     Dosage: 40 MG

REACTIONS (1)
  - SEPSIS [None]
